FAERS Safety Report 9171757 (Version 1)
Quarter: 2013Q1

REPORT INFORMATION
  Report Type: Spontaneous
  Country: US (occurrence: US)
  Receive Date: 20130319
  Receipt Date: 20130319
  Transmission Date: 20140127
  Serious: No
  Sender: FDA-Public Use
  Company Number: US-PFIZER INC-2013087689

PATIENT
  Age: 48 Year
  Sex: Female
  Weight: 83.9 kg

DRUGS (2)
  1. GENOTROPIN MQ [Suspect]
     Indication: HYPOTHALAMO-PITUITARY DISORDER
     Dosage: UNK, 1X/DAY
     Dates: start: 201108
  2. LEVOTHROID [Concomitant]
     Indication: HYPOTHYROIDISM
     Dosage: UNK, 1X/DAY

REACTIONS (1)
  - Musculoskeletal stiffness [Unknown]
